FAERS Safety Report 20128431 (Version 1)
Quarter: 2021Q4

REPORT INFORMATION
  Report Type: Report from Study
  Country: MX (occurrence: MX)
  Receive Date: 20211130
  Receipt Date: 20211130
  Transmission Date: 20220303
  Serious: Yes (Disabling, Other)
  Sender: FDA-Public Use
  Company Number: MX-ABBVIE-21K-107-4177819-00

PATIENT
  Sex: Female

DRUGS (1)
  1. HUMIRA [Suspect]
     Active Substance: ADALIMUMAB
     Indication: Rheumatoid arthritis
     Route: 058
     Dates: start: 20210625

REACTIONS (3)
  - Fall [Recovering/Resolving]
  - Pelvic fracture [Recovering/Resolving]
  - Hernia [Unknown]

NARRATIVE: CASE EVENT DATE: 20210101
